FAERS Safety Report 9228436 (Version 1)
Quarter: 2013Q1

REPORT INFORMATION
  Report Type: Spontaneous
  Country: US (occurrence: None)
  Receive Date: 20121024
  Receipt Date: 20121024
  Transmission Date: 20140127
  Serious: Yes (Other)
  Sender: FDA-Public Use
  Company Number: DSA_55321_2012

PATIENT
  Age: 20 Year
  Sex: Female

DRUGS (1)
  1. BUPROPION HYDROCHLORIDE 450MG [Suspect]
     Indication: DEPRESSION
     Dosage: (450MG, QD ORAL), (DF ORAL)
     Route: 048
     Dates: start: 201107

REACTIONS (1)
  - Convulsion [None]
